FAERS Safety Report 25096820 (Version 1)
Quarter: 2025Q1

REPORT INFORMATION
  Report Type: Spontaneous
  Country: GB (occurrence: GB)
  Receive Date: 20250319
  Receipt Date: 20250319
  Transmission Date: 20250409
  Serious: Yes (Other)
  Sender: ESPERION THERAPEUTICS
  Company Number: GB-MHRA-TPP17811819C7281575YC1741706250731

PATIENT

DRUGS (19)
  1. BEMPEDOIC ACID [Suspect]
     Active Substance: BEMPEDOIC ACID
     Indication: Ill-defined disorder
     Dosage: 180 MG, QD
     Route: 065
     Dates: start: 20250213, end: 20250310
  2. IBUPROFEN [Concomitant]
     Active Substance: IBUPROFEN
     Indication: Ill-defined disorder
     Route: 065
     Dates: start: 20250226
  3. ALLOPURINOL [Concomitant]
     Active Substance: ALLOPURINOL
     Indication: Ill-defined disorder
     Dosage: 1 DOSAGE FORM, QD
     Route: 065
     Dates: start: 20240227
  4. ASPIRIN [Concomitant]
     Active Substance: ASPIRIN
     Indication: Ill-defined disorder
     Dosage: 1 DOSAGE FORM, QD (TAKE ONE DAILY AT SUPPER TIME 18.00)
     Route: 065
     Dates: start: 20240227
  5. ATORVASTATIN [Concomitant]
     Active Substance: ATORVASTATIN
     Indication: Ill-defined disorder
     Dosage: 1 DOSAGE FORM, QD (TAKE ONE DAILY AT BREAKFAST TIME 8.00)
     Route: 065
     Dates: start: 20240227
  6. BISOPROLOL [Concomitant]
     Active Substance: BISOPROLOL
     Indication: Ill-defined disorder
     Dosage: 1 DOSAGE FORM, QD
     Route: 065
     Dates: start: 20240227
  7. ISOPROPYL MYRISTATE\MINERAL OIL [Concomitant]
     Active Substance: ISOPROPYL MYRISTATE\MINERAL OIL
     Indication: Ill-defined disorder
     Route: 065
     Dates: start: 20240227
  8. EZETIMIBE [Concomitant]
     Active Substance: EZETIMIBE
     Indication: Ill-defined disorder
     Dosage: 1 DOSAGE FORM, QD (TAKE ONE DAILY AT SUPPER TIME 18.00)
     Route: 065
     Dates: start: 20240227
  9. FOLIC ACID [Concomitant]
     Active Substance: FOLIC ACID
     Indication: Ill-defined disorder
     Dosage: 1 DOSAGE FORM, ONCE EVERY 1 WK (TAKE ONE WEEKLY)
     Route: 065
     Dates: start: 20240227
  10. INVITA D3 [Concomitant]
     Indication: Ill-defined disorder
     Dosage: 1 DOSAGE FORM, QD (TAKE ONE DAILY THROUGH WINTER MONTHS AS PER GOV)
     Route: 065
     Dates: start: 20240227
  11. NICOTINELL [Concomitant]
     Active Substance: NICOTINE
     Indication: Ill-defined disorder
     Route: 065
     Dates: start: 20240227
  12. OMEPRAZOLE [Concomitant]
     Active Substance: OMEPRAZOLE
     Indication: Ill-defined disorder
     Dosage: 2 DOSAGE FORM, QD (TAKE TWO IN THE MORNING)
     Route: 065
     Dates: start: 20240227
  13. RAMIPRIL [Concomitant]
     Active Substance: RAMIPRIL
     Indication: Ill-defined disorder
     Dosage: 1 DOSAGE FORM, QD (TAKE ONE DAILY)
     Route: 065
     Dates: start: 20240227
  14. SILDENAFIL [Concomitant]
     Active Substance: SILDENAFIL
     Indication: Ill-defined disorder
     Route: 065
     Dates: start: 20240227
  15. SPIRONOLACTONE [Concomitant]
     Active Substance: SPIRONOLACTONE
     Indication: Ill-defined disorder
     Route: 065
     Dates: start: 20240227
  16. TESTOSTERONE [Concomitant]
     Active Substance: TESTOSTERONE
     Indication: Ill-defined disorder
     Route: 065
     Dates: start: 20240227, end: 20250123
  17. VARDENAFIL [Concomitant]
     Active Substance: VARDENAFIL HYDROCHLORIDE
     Indication: Ill-defined disorder
     Route: 065
     Dates: start: 20240227
  18. ACETAMINOPHEN [Concomitant]
     Active Substance: ACETAMINOPHEN
     Indication: Ill-defined disorder
     Route: 065
     Dates: start: 20240927
  19. GABAPENTIN [Concomitant]
     Active Substance: GABAPENTIN
     Indication: Ill-defined disorder
     Dosage: 1 DOSAGE FORM, TID (TAKE ONE 3 TIMES/DAY)
     Route: 065
     Dates: start: 20241223

REACTIONS (2)
  - Peripheral swelling [Recovering/Resolving]
  - Pain [Unknown]
